FAERS Safety Report 13668646 (Version 1)
Quarter: 2017Q2

REPORT INFORMATION
  Report Type: Spontaneous
  Country: US (occurrence: US)
  Receive Date: 20170620
  Receipt Date: 20170620
  Transmission Date: 20170830
  Serious: Yes (Life-Threatening)
  Sender: FDA-Public Use
  Company Number: None

PATIENT
  Age: 28 Year
  Sex: Male
  Weight: 61.24 kg

DRUGS (1)
  1. TRUVADA [Suspect]
     Active Substance: EMTRICITABINE\TENOFOVIR DISOPROXIL FUMARATE
     Indication: PROPHYLAXIS
     Route: 048
     Dates: start: 20161117, end: 20170504

REACTIONS (9)
  - Jaundice [None]
  - Pyrexia [None]
  - Dyspnoea [None]
  - Lymphocytosis [None]
  - Pain [None]
  - Red blood cell burr cells present [None]
  - Cough [None]
  - Poikilocytosis [None]
  - Hepatic enzyme increased [None]

NARRATIVE: CASE EVENT DATE: 20170504
